FAERS Safety Report 12454126 (Version 1)
Quarter: 2016Q2

REPORT INFORMATION
  Report Type: Spontaneous
  Country: US (occurrence: US)
  Receive Date: 20160610
  Receipt Date: 20160610
  Transmission Date: 20160815
  Serious: No
  Sender: FDA-Public Use
  Company Number: US-TEVA-661804USA

PATIENT
  Sex: Female

DRUGS (1)
  1. ENOXAPARIN [Suspect]
     Active Substance: ENOXAPARIN
     Dosage: 120 MG / 0.8 ML
     Route: 065
     Dates: start: 20160329

REACTIONS (4)
  - Injection site pain [Unknown]
  - Syringe issue [Unknown]
  - Injection site bruising [Unknown]
  - Product use issue [Unknown]
